FAERS Safety Report 6727691-4 (Version None)
Quarter: 2010Q2

REPORT INFORMATION
  Report Type: 
  Country: None (occurrence: None)
  Receive Date: 20100512
  Receipt Date: 20100504
  Transmission Date: 20101027
  Serious: Yes (Hospitalization, Other)
  Sender: FDA-Public Use
  Company Number: JHP201000155

PATIENT
  Age: 61 Year
  Sex: Female

DRUGS (3)
  1. EPINEPHRINE [Suspect]
     Indication: ANAPHYLACTIC REACTION
     Dosage: HIGH DOSE, INTRAVENOUS
     Route: 042
  2. NORADRENALIN (NOREPINEPHRINE) [Suspect]
     Indication: ANAPHYLACTIC REACTION
     Dosage: HIGH DOES, INTRAVENOUS
     Route: 042
  3. ANESTHESIA [Concomitant]

REACTIONS (1)
  - STRESS CARDIOMYOPATHY [None]
